FAERS Safety Report 5528712-7 (Version None)
Quarter: 2007Q4

REPORT INFORMATION
  Report Type: 
  Country: None (occurrence: None)
  Receive Date: 20071129
  Receipt Date: 20071029
  Transmission Date: 20080405
  Serious: No
  Sender: FDA-Public Use
  Company Number: US-JNJFOC-20071100318

PATIENT
  Age: 48 Year
  Sex: Female

DRUGS (2)
  1. INVEGA [Suspect]
     Indication: POST-TRAUMATIC STRESS DISORDER
     Route: 048
  2. ARTHRITIS MEDICATION [Concomitant]
     Indication: ARTHRALGIA

REACTIONS (1)
  - TREMOR [None]
